FAERS Safety Report 22640674 (Version 1)
Quarter: 2023Q2

REPORT INFORMATION
  Report Type: Report from Study
  Country: US (occurrence: US)
  Receive Date: 20230626
  Receipt Date: 20230626
  Transmission Date: 20230722
  Serious: No
  Sender: FDA-Public Use
  Company Number: US-Accord-274217

PATIENT
  Age: 70 Year
  Sex: Male

DRUGS (4)
  1. AMLODIPINE [Suspect]
     Active Substance: AMLODIPINE BESYLATE
     Indication: Product used for unknown indication
  2. RELUGOLIX [Suspect]
     Active Substance: RELUGOLIX
     Indication: Prostate cancer
     Dosage: STRENGTH: 120MG, ONE TIME DOSE
     Route: 048
     Dates: start: 20220713, end: 20220713
  3. RELUGOLIX [Suspect]
     Active Substance: RELUGOLIX
     Indication: Prostate cancer
     Dosage: STRENGTH: 120MG, QD
     Route: 048
     Dates: start: 20220714
  4. RELUGOLIX [Suspect]
     Active Substance: RELUGOLIX
     Indication: Prostate cancer
     Dosage: STRENGTH: 120MG

REACTIONS (5)
  - Fatigue [Unknown]
  - Night sweats [Not Recovered/Not Resolved]
  - Mood altered [Unknown]
  - Chills [Unknown]
  - Asthenia [Unknown]
